FAERS Safety Report 8579665-9 (Version None)
Quarter: 2012Q3

REPORT INFORMATION
  Report Type: 
  Country: None (occurrence: None)
  Receive Date: 20120808
  Receipt Date: 20120730
  Transmission Date: 20120928
  Serious: Yes (Other)
  Sender: FDA-Public Use
  Company Number: US-ROCHE-1093214

PATIENT
  Sex: Female
  Weight: 68 kg

DRUGS (19)
  1. METHOTREXATE [Concomitant]
  2. CYANOCOBALAMIN [Concomitant]
     Route: 060
  3. ACTEMRA [Suspect]
     Indication: RHEUMATOID ARTHRITIS
     Route: 042
     Dates: start: 20120305
  4. ACTEMRA [Suspect]
     Route: 042
     Dates: start: 20120626, end: 20120717
  5. RANITIDINE [Concomitant]
     Route: 048
  6. ALENDRONATE SODIUM [Concomitant]
  7. PREDNISONE TAB [Concomitant]
     Route: 048
  8. ASPIRIN [Concomitant]
     Route: 048
  9. SERTRALINE HYDROCHLORIDE [Concomitant]
     Route: 048
  10. CHOLECALCIFEROL [Concomitant]
     Dosage: DOSE EQUAL TO 1000-2000 UNITS
     Route: 048
  11. SENNA/DOCUSATE SODIUM [Concomitant]
     Dosage: 8.6-50 MG TABLET AS NEEDED
     Route: 048
  12. OMEPRAZOLE [Concomitant]
     Dosage: AS NEEDED
     Route: 048
  13. POLYETHYLENE GLYCOL [Concomitant]
     Dosage: AS NEEDED
     Route: 048
  14. UBIQUINONE [Concomitant]
     Route: 048
  15. PREDNISONE TAB [Concomitant]
     Route: 048
  16. ACTEMRA [Suspect]
     Route: 042
     Dates: start: 20120426
  17. ACTEMRA [Suspect]
     Route: 042
     Dates: start: 20120524
  18. FOLIC ACID [Concomitant]
     Route: 048
  19. OMEGA 3 FATTY ACIDS [Concomitant]
     Route: 048

REACTIONS (5)
  - ABDOMINAL DISTENSION [None]
  - NAUSEA [None]
  - ULCER [None]
  - ABDOMINAL PAIN [None]
  - DIARRHOEA [None]
